FAERS Safety Report 17813381 (Version 1)
Quarter: 2020Q2

REPORT INFORMATION
  Report Type: Spontaneous
  Country: CA (occurrence: CA)
  Receive Date: 20200521
  Receipt Date: 20200521
  Transmission Date: 20200714
  Serious: Yes (Hospitalization)
  Sender: FDA-Public Use
  Company Number: CA-TEVA-2020-CA-1237728

PATIENT
  Age: 29 Year
  Sex: Male

DRUGS (1)
  1. QUETIAPINE FUMARATE. [Suspect]
     Active Substance: QUETIAPINE FUMARATE
     Indication: ADJUSTMENT DISORDER WITH DEPRESSED MOOD
     Route: 048

REACTIONS (6)
  - Aggression [Unknown]
  - Obsessive thoughts [Unknown]
  - Mental disorder [Unknown]
  - Delusion [Unknown]
  - Mania [Unknown]
  - Initial insomnia [Unknown]
